FAERS Safety Report 8304811-1 (Version None)
Quarter: 2012Q2

REPORT INFORMATION
  Report Type: 
  Country: None (occurrence: None)
  Receive Date: 20120423
  Receipt Date: 20120409
  Transmission Date: 20120825
  Serious: Yes (Hospitalization)
  Sender: FDA-Public Use
  Company Number: GB-RANBAXY-2012R1-52871

PATIENT
  Age: 26 Year
  Sex: Female
  Weight: 70 kg

DRUGS (2)
  1. GABAPENTIN [Suspect]
     Indication: DIABETIC NEUROPATHY
     Dosage: 900 MG, TID
     Route: 048
     Dates: end: 20110311
  2. MS CONTIN [Concomitant]
     Indication: DIABETIC NEUROPATHY
     Dosage: 40 MG, BID
     Route: 065
     Dates: start: 20111014

REACTIONS (4)
  - CAESAREAN SECTION [None]
  - PYREXIA [None]
  - DIABETIC KETOACIDOSIS [None]
  - FOETAL MONITORING ABNORMAL [None]
